FAERS Safety Report 5649656-6 (Version None)
Quarter: 2008Q1

REPORT INFORMATION
  Report Type: 
  Country: None (occurrence: None)
  Receive Date: 20080304
  Receipt Date: 20080212
  Transmission Date: 20080703
  Serious: Yes (Hospitalization)
  Sender: FDA-Public Use
  Company Number: US-BAYER-200813887GPV

PATIENT

DRUGS (1)
  1. GADOPENTETATE DIMEGLUMINE (MAGNEVIST) [Suspect]
     Indication: NUCLEAR MAGNETIC RESONANCE IMAGING
     Route: 042

REACTIONS (4)
  - LARYNGEAL OEDEMA [None]
  - NASAL CONGESTION [None]
  - SNEEZING [None]
  - URTICARIA [None]
